FAERS Safety Report 8904175 (Version 1)
Quarter: 2012Q4

REPORT INFORMATION
  Report Type: 
  Country: US (occurrence: US)
  Receive Date: 20121112
  Receipt Date: 20121112
  Transmission Date: 20130627
  Serious: No
  Sender: FDA-Public Use
  Company Number: US-PFIZER INC-2012277741

PATIENT
  Sex: Male

DRUGS (2)
  1. CELEBREX [Suspect]
     Indication: ARTHRITIS
     Dosage: 100 mg, UNK
     Dates: start: 201210, end: 201210
  2. CELEBREX [Suspect]
     Indication: INTERVERTEBRAL DISC DEGENERATION

REACTIONS (1)
  - Drug effect incomplete [Unknown]
